FAERS Safety Report 15791381 (Version 3)
Quarter: 2022Q2

REPORT INFORMATION
  Report Type: Report from Study
  Country: US (occurrence: US)
  Receive Date: 20190104
  Receipt Date: 20220506
  Transmission Date: 20220720
  Serious: No
  Sender: FDA-Public Use
  Company Number: US-JAZZ-2018-US-018690

PATIENT
  Age: 38 Year
  Sex: Female

DRUGS (13)
  1. XYREM [Suspect]
     Active Substance: SODIUM OXYBATE
     Indication: Narcolepsy
     Dosage: 2.5 G, FIRST NIGHTLY DOSE
     Route: 048
     Dates: start: 201812, end: 201812
  2. XYREM [Suspect]
     Active Substance: SODIUM OXYBATE
     Indication: Cataplexy
     Dosage: 1.5 G, SECOND NIGHTLY DOSE
     Route: 048
     Dates: start: 201812, end: 201812
  3. XYREM [Suspect]
     Active Substance: SODIUM OXYBATE
     Indication: Somnolence
     Dosage: 4.5 G, FIRST NIGHTLY DOSE
     Route: 048
     Dates: start: 201812
  4. XYREM [Suspect]
     Active Substance: SODIUM OXYBATE
     Dosage: 3.5 G, SECOND NIGHTLY DOSE
     Route: 048
     Dates: start: 201812
  5. OXYMETAZOLINE HYDROCHLORIDE [Concomitant]
     Active Substance: OXYMETAZOLINE HYDROCHLORIDE
     Indication: Product used for unknown indication
     Dosage: QD
     Dates: start: 20121001
  6. PROBIOTIC BLEND [Concomitant]
     Indication: Product used for unknown indication
     Dosage: UNK, QD
     Dates: start: 20170401
  7. FLONASE ALLERGY RELIEF [Concomitant]
     Active Substance: FLUTICASONE PROPIONATE
     Indication: Product used for unknown indication
     Dosage: UNK
     Dates: start: 20131001
  8. WARFARIN SODIUM [Concomitant]
     Active Substance: WARFARIN SODIUM
     Indication: Product used for unknown indication
     Dosage: UNK
     Dates: start: 20111001
  9. SINGULAIR [Concomitant]
     Active Substance: MONTELUKAST SODIUM
     Indication: Product used for unknown indication
     Dosage: UNK, QD
     Dates: start: 20131001
  10. MINOCYCLINE [Concomitant]
     Active Substance: MINOCYCLINE HYDROCHLORIDE
     Indication: Product used for unknown indication
     Dosage: UNK, QD
     Dates: start: 20161001
  11. BUTALBITAL, ACETAMINOPHEN, AND CAFFEINE [Concomitant]
     Active Substance: ACETAMINOPHEN\BUTALBITAL\CAFFEINE
     Indication: Product used for unknown indication
     Dosage: UNK
     Dates: start: 20131001
  12. BENADRYL ALLERGY + COLD [Concomitant]
     Indication: Product used for unknown indication
     Dosage: UNK
     Dates: start: 20190414
  13. MULTIVITAMINS + IRON [Concomitant]
     Indication: Product used for unknown indication
     Dosage: UNK
     Dates: start: 20190421

REACTIONS (8)
  - Migraine [Unknown]
  - Pruritus [Unknown]
  - Asthma [Unknown]
  - Hypoaesthesia oral [Recovered/Resolved]
  - Vertigo [Unknown]
  - Headache [Not Recovered/Not Resolved]
  - Depression [Unknown]
  - Drug titration error [Unknown]

NARRATIVE: CASE EVENT DATE: 20181201
